FAERS Safety Report 5748568-7 (Version None)
Quarter: 2008Q2

REPORT INFORMATION
  Report Type: 
  Country: None (occurrence: None)
  Receive Date: 20080521
  Receipt Date: 20080509
  Transmission Date: 20081010
  Serious: Yes (Other)
  Sender: FDA-Public Use
  Company Number: 163-21880-08050597

PATIENT
  Age: 72 Year
  Sex: Male

DRUGS (11)
  1. REVLIMID [Suspect]
     Indication: MYELOFIBROSIS
     Dosage: 5 MG, 1 IN 2 D, ORAL; 10 MG, 1 IN 1 D, ORAL
     Route: 048
     Dates: start: 20070214, end: 20080101
  2. REVLIMID [Suspect]
     Indication: MYELOFIBROSIS
     Dosage: 5 MG, 1 IN 2 D, ORAL; 10 MG, 1 IN 1 D, ORAL
     Route: 048
     Dates: start: 20080509
  3. PLAVIX [Concomitant]
  4. FOLIC ACID [Concomitant]
  5. FLOMAX [Concomitant]
  6. IRON (IRON) [Concomitant]
  7. CHONDROITIN SULFATE/GLUCOSAMINE (GLUCOSAMINE W/CHONDROITIN SULFATE) [Concomitant]
  8. OCUVITE (OCUVITE) [Concomitant]
  9. FISH OIL (FISH OIL) [Concomitant]
  10. ASPIRIN [Concomitant]
  11. VIAGRA [Concomitant]

REACTIONS (13)
  - BLOOD CREATININE INCREASED [None]
  - CONSTIPATION [None]
  - FATIGUE [None]
  - GASTRIC ULCER [None]
  - GASTROINTESTINAL ULCER [None]
  - HAEMATOCRIT DECREASED [None]
  - HAEMOGLOBIN DECREASED [None]
  - HEMIANOPIA HOMONYMOUS [None]
  - MUSCLE SPASMS [None]
  - MYALGIA [None]
  - NEUTROPHIL COUNT DECREASED [None]
  - NIGHT SWEATS [None]
  - PAIN [None]
